FAERS Safety Report 5355912-1 (Version None)
Quarter: 2007Q2

REPORT INFORMATION
  Report Type: 
  Country: None (occurrence: None)
  Receive Date: 20070530
  Receipt Date: 20061206
  Transmission Date: 20071010
  Serious: Yes (Hospitalization)
  Sender: FDA-Public Use
  Company Number: US200609007183

PATIENT
  Age: 39 Year
  Sex: Female
  Weight: 97.5 kg

DRUGS (5)
  1. ZYPREXA [Suspect]
     Dates: start: 20030101, end: 20050101
  2. RISPERDAL /SWE/ (RISPERIDONE) [Concomitant]
  3. WELLBUTRIN [Concomitant]
  4. PROZAC [Concomitant]
  5. ZOLOFT [Concomitant]

REACTIONS (5)
  - ACETONAEMIA [None]
  - BILIARY TRACT DISORDER [None]
  - DIABETES MELLITUS [None]
  - KETONURIA [None]
  - VISION BLURRED [None]
